FAERS Safety Report 13261946 (Version 3)
Quarter: 2017Q1

REPORT INFORMATION
  Report Type: Report from Study
  Country: None (occurrence: NL)
  Receive Date: 20170222
  Receipt Date: 20170322
  Transmission Date: 20170428
  Serious: Yes (Hospitalization, Other)
  Sender: FDA-Public Use
  Company Number: NL-ABBVIE-17P-114-1881945-00

PATIENT
  Age: 65 Year
  Sex: Female

DRUGS (1)
  1. DUODOPA [Suspect]
     Active Substance: CARBIDOPA\LEVODOPA
     Indication: PARKINSON^S DISEASE
     Dosage: MD: 14.0, CD: 1.7, ED: 2.0
     Route: 050
     Dates: start: 20160829

REACTIONS (12)
  - Hypokinesia [Recovered/Resolved]
  - Nephrolithiasis [Not Recovered/Not Resolved]
  - Stoma site discharge [Recovered/Resolved]
  - Device dislocation [Unknown]
  - Stoma site extravasation [Recovered/Resolved]
  - Stoma site irritation [Unknown]
  - Underdose [Recovered/Resolved]
  - Pyelonephritis [Not Recovered/Not Resolved]
  - General physical health deterioration [Recovering/Resolving]
  - On and off phenomenon [Recovered/Resolved]
  - Urosepsis [Not Recovered/Not Resolved]
  - Renal impairment [Not Recovered/Not Resolved]

NARRATIVE: CASE EVENT DATE: 20170223
